FAERS Safety Report 13263904 (Version 1)
Quarter: 2017Q1

REPORT INFORMATION
  Report Type: Spontaneous
  Country: US (occurrence: US)
  Receive Date: 20170223
  Receipt Date: 20170223
  Transmission Date: 20170428
  Serious: No
  Sender: FDA-Public Use
  Company Number: US-PFIZER INC-2017081491

PATIENT
  Age: 55 Year
  Sex: Female
  Weight: 89.36 kg

DRUGS (1)
  1. CHANTIX [Suspect]
     Active Substance: VARENICLINE TARTRATE
     Indication: SMOKING CESSATION THERAPY
     Dosage: 1 MG, 2X/DAY (1MG TABLET ONE IN MORNING AND ONE IN THE EVENING)
     Dates: end: 201701

REACTIONS (2)
  - Therapeutic response unexpected [Not Recovered/Not Resolved]
  - Pre-existing condition improved [Not Recovered/Not Resolved]

NARRATIVE: CASE EVENT DATE: 2016
